FAERS Safety Report 9917811 (Version 1)
Quarter: 2014Q1

REPORT INFORMATION
  Report Type: Spontaneous
  Country: US (occurrence: US)
  Receive Date: 20140221
  Receipt Date: 20140221
  Transmission Date: 20141002
  Serious: Yes (Hospitalization, Other)
  Sender: FDA-Public Use
  Company Number: US-RB-063657-14

PATIENT
  Sex: Female

DRUGS (2)
  1. SUBOXONE TABLET [Suspect]
     Indication: DRUG DEPENDENCE
     Route: 060
     Dates: start: 2008, end: 2010
  2. SUBOXONE FILM [Suspect]
     Indication: DRUG DEPENDENCE
     Dosage: SUBOXONE FILM
     Route: 060
     Dates: start: 2010, end: 2010

REACTIONS (7)
  - Hallucination, visual [Recovered/Resolved]
  - Paranoia [Recovered/Resolved]
  - Loss of consciousness [Recovered/Resolved]
  - Weight decreased [Recovered/Resolved]
  - Hypersomnia [Recovered/Resolved]
  - Bipolar disorder [Recovered/Resolved]
  - Depression [Recovered/Resolved]
